FAERS Safety Report 6324249-6 (Version None)
Quarter: 2009Q3

REPORT INFORMATION
  Report Type: 
  Country: None (occurrence: None)
  Receive Date: 20090820
  Receipt Date: 20090811
  Transmission Date: 20100115
  Serious: Yes (Other)
  Sender: FDA-Public Use
  Company Number: AUR-APU-2009-00421

PATIENT
  Age: 31 Year
  Sex: Female

DRUGS (5)
  1. STAVUDINE (MFR. UNKNOWN) [Suspect]
     Dosage: 60MG, DAILY; ORAL
     Route: 048
     Dates: start: 20060104, end: 20080506
  2. LAMIVUDINE (MFR. UNKNOWN) [Suspect]
     Dosage: 300MG, DAILY, ORAL
     Route: 048
     Dates: start: 20060104, end: 20080506
  3. EFAVIRENZ [Suspect]
     Dosage: 600 MG, DAILY, ORAL
     Route: 048
     Dates: start: 20060604, end: 20080506
  4. LAMIVUDINE AND ZIDOVUDINE [Suspect]
     Dosage: 2 DAILY, ORAL
     Route: 048
     Dates: start: 20080507
  5. NEVIRAPINE [Suspect]
     Dosage: 400MG, DAILY; ORAL
     Route: 048
     Dates: start: 20080507

REACTIONS (2)
  - ABORTION SPONTANEOUS [None]
  - DRUG EXPOSURE DURING PREGNANCY [None]
